FAERS Safety Report 6152073-6 (Version None)
Quarter: 2009Q2

REPORT INFORMATION
  Report Type: 
  Country: None (occurrence: None)
  Receive Date: 20090408
  Receipt Date: 20090323
  Transmission Date: 20091009
  Serious: Yes (Hospitalization)
  Sender: FDA-Public Use
  Company Number: 8044385

PATIENT
  Age: 75 Year
  Sex: Male

DRUGS (1)
  1. KEPPRA [Suspect]
     Dosage: 500 MG 2/D PO
     Route: 048

REACTIONS (3)
  - EPILEPSY [None]
  - MALABSORPTION [None]
  - PETIT MAL EPILEPSY [None]
